FAERS Safety Report 19253381 (Version 1)
Quarter: 2021Q2

REPORT INFORMATION
  Report Type: Spontaneous
  Country: GB (occurrence: GB)
  Receive Date: 20210513
  Receipt Date: 20210513
  Transmission Date: 20210717
  Serious: Yes (Other)
  Sender: FDA-Public Use
  Company Number: GB-JNJFOC-20210516009

PATIENT
  Age: 36 Year
  Sex: Female

DRUGS (1)
  1. SIMPONI [Suspect]
     Active Substance: GOLIMUMAB
     Indication: RHEUMATOID ARTHRITIS
     Route: 058

REACTIONS (7)
  - Migraine [Unknown]
  - Feeling cold [Unknown]
  - Product dose omission issue [Unknown]
  - Hypothyroidism [Unknown]
  - Groin abscess [Unknown]
  - Heart rate increased [Unknown]
  - Feeling abnormal [Unknown]
